FAERS Safety Report 25674616 (Version 1)
Quarter: 2025Q3

REPORT INFORMATION
  Report Type: Spontaneous
  Country: TN (occurrence: TN)
  Receive Date: 20250813
  Receipt Date: 20250813
  Transmission Date: 20251020
  Serious: Yes (Other)
  Sender: RANBAXY
  Company Number: TN-SUN PHARMACEUTICAL INDUSTRIES LTD-2025RR-494094

PATIENT
  Age: 71 Year
  Sex: Male

DRUGS (1)
  1. SUNITINIB [Suspect]
     Active Substance: SUNITINIB
     Indication: Renal cancer metastatic
     Dosage: 50 MILLIGRAM, QD, 4 CYCLES
     Route: 048

REACTIONS (2)
  - Hyperbilirubinaemia [Unknown]
  - Hepatotoxicity [Unknown]
